FAERS Safety Report 6794471-3 (Version None)
Quarter: 2010Q2

REPORT INFORMATION
  Report Type: 
  Country: None (occurrence: None)
  Receive Date: 20100625
  Receipt Date: 20100616
  Transmission Date: 20101027
  Serious: Yes (Other)
  Sender: FDA-Public Use
  Company Number: DE-BAYER-201025708GPV

PATIENT
  Age: 44 Year
  Sex: Female
  Weight: 66 kg

DRUGS (1)
  1. MIRENA [Suspect]
     Indication: DRUG USE FOR UNKNOWN INDICATION
     Route: 015
     Dates: start: 20060301

REACTIONS (3)
  - GRANULOMATOUS LIVER DISEASE [None]
  - LUNG NEOPLASM [None]
  - NIGHT SWEATS [None]
